FAERS Safety Report 16338924 (Version 7)
Quarter: 2020Q3

REPORT INFORMATION
  Report Type: Report from Study
  Country: CA (occurrence: CA)
  Receive Date: 20190521
  Receipt Date: 20200818
  Transmission Date: 20201102
  Serious: Yes (Hospitalization, Disabling, Other)
  Sender: FDA-Public Use
  Company Number: CA-GLAXOSMITHKLINE-CA2019GSK057955

PATIENT
  Age: 62 Year
  Sex: Male

DRUGS (32)
  1. VITAMIN D [Suspect]
     Active Substance: VITAMIN D NOS
     Indication: PRODUCT USED FOR UNKNOWN INDICATION
     Dosage: UNK
  2. ZOLADEX [Suspect]
     Active Substance: GOSERELIN ACETATE
     Indication: PRODUCT USED FOR UNKNOWN INDICATION
     Dosage: UNK
     Dates: start: 201904
  3. TRIMETHOPRIM AND SULFAMETHOXAZOLE [Suspect]
     Active Substance: SULFAMETHOXAZOLE\TRIMETHOPRIM
     Indication: PRODUCT USED FOR UNKNOWN INDICATION
     Dosage: UNK
  4. PREDNISONE. [Suspect]
     Active Substance: PREDNISONE
     Dosage: 2 MG, QD
  5. BICALUTAMIDE. [Suspect]
     Active Substance: BICALUTAMIDE
     Indication: PRODUCT USED FOR UNKNOWN INDICATION
     Dosage: 50 MG, QD
     Route: 048
  6. FLUTICASONE PROPIONATE+SALMETEROL XINAFOATE [Suspect]
     Active Substance: FLUTICASONE PROPIONATE\SALMETEROL XINAFOATE
     Indication: EOSINOPHILIC GRANULOMATOSIS WITH POLYANGIITIS
     Dosage: 2 DF, QD
  7. RAMIPRIL. [Suspect]
     Active Substance: RAMIPRIL
     Indication: PRODUCT USED FOR UNKNOWN INDICATION
     Dosage: 10 MG, QD
     Route: 048
  8. OMNARIS [Suspect]
     Active Substance: CICLESONIDE
     Indication: PRODUCT USED FOR UNKNOWN INDICATION
     Dosage: 2 PUFF(S), UNK
  9. METHOTREXATE. [Suspect]
     Active Substance: METHOTREXATE
     Dosage: 25 MG, UNK(ONCE A WEEK)
     Dates: start: 201206
  10. PREDNISONE. [Suspect]
     Active Substance: PREDNISONE
     Dosage: 7.5 MG, QD
     Dates: start: 201409
  11. LANSOPRAZOLE. [Suspect]
     Active Substance: LANSOPRAZOLE
     Indication: PRODUCT USED FOR UNKNOWN INDICATION
     Dosage: 30 MG, QD
  12. FOLATE [Suspect]
     Active Substance: FOLATE SODIUM
     Indication: PRODUCT USED FOR UNKNOWN INDICATION
     Dosage: 5 MG, QD (6 DAYS PER WEEK)
  13. PREDNISONE. [Suspect]
     Active Substance: PREDNISONE
     Dosage: 10 MG, QD
     Dates: start: 201211
  14. PREDNISONE. [Suspect]
     Active Substance: PREDNISONE
     Indication: PRODUCT USED FOR UNKNOWN INDICATION
     Dosage: 5 MG, QD
  15. ALENDRONATE [Suspect]
     Active Substance: ALENDRONATE SODIUM
     Indication: PRODUCT USED FOR UNKNOWN INDICATION
     Dosage: 70 MG, UNK(ONCE PERWEEK)
     Route: 048
  16. NUCALA [Concomitant]
     Active Substance: MEPOLIZUMAB
     Indication: EOSINOPHILIC GRANULOMATOSIS WITH POLYANGIITIS
     Dosage: 300 MG, Z, MONTHLY
     Route: 042
     Dates: start: 20190611
  17. CALCIUM [Suspect]
     Active Substance: CALCIUM
     Indication: PRODUCT USED FOR UNKNOWN INDICATION
     Dosage: UNK
  18. METHOTREXATE. [Suspect]
     Active Substance: METHOTREXATE
     Dosage: 15 MG, UNK
     Dates: start: 201112
  19. METHOTREXATE. [Suspect]
     Active Substance: METHOTREXATE
     Indication: PRODUCT USED FOR UNKNOWN INDICATION
     Dosage: 25 MG, UNK(ONCE A WEEK)
     Dates: start: 200902
  20. FLUTICASONE. [Suspect]
     Active Substance: FLUTICASONE
     Indication: EOSINOPHILIC GRANULOMATOSIS WITH POLYANGIITIS
     Dosage: UNK
  21. METHOTREXATE. [Suspect]
     Active Substance: METHOTREXATE
     Dosage: 7.5 MG, UNK (ONCE A WEEK)
     Dates: start: 201101, end: 201105
  22. ADVAIR DISKUS [Suspect]
     Active Substance: FLUTICASONE PROPIONATE\SALMETEROL XINAFOATE
     Indication: PRODUCT USED FOR UNKNOWN INDICATION
     Dosage: 5 UG, BID, 1 PUFF
  23. PREDNISONE. [Suspect]
     Active Substance: PREDNISONE
     Dosage: 1 MG
  24. CYCLOPHOSPHAMIDE. [Suspect]
     Active Substance: CYCLOPHOSPHAMIDE
     Dosage: 175 MG, QD
     Route: 048
     Dates: start: 20080815, end: 200901
  25. NUCALA [Concomitant]
     Active Substance: MEPOLIZUMAB
     Dosage: 300 MG, Z, MONTHLY
     Route: 042
  26. VENTOLIN [Suspect]
     Active Substance: ALBUTEROL SULFATE
     Indication: EOSINOPHILIC GRANULOMATOSIS WITH POLYANGIITIS
     Dosage: UNK UNK, PRN
  27. SINUS RINSE [Suspect]
     Active Substance: SODIUM BICARBONATE\SODIUM CHLORIDE
     Indication: PRODUCT USED FOR UNKNOWN INDICATION
     Dosage: UNK
  28. METHOTREXATE. [Suspect]
     Active Substance: METHOTREXATE
     Dosage: 15 MG, UNK (ONCE A WEEK)
     Dates: start: 2010
  29. METHOTREXATE. [Suspect]
     Active Substance: METHOTREXATE
     Dosage: 20 MG, UNK
     Dates: start: 201602
  30. PREDNISONE. [Suspect]
     Active Substance: PREDNISONE
     Dosage: 2 MG
  31. CYCLOPHOSPHAMIDE. [Suspect]
     Active Substance: CYCLOPHOSPHAMIDE
     Indication: PRODUCT USED FOR UNKNOWN INDICATION
     Dosage: 1200 MG, UNK
     Route: 042
     Dates: start: 20080520
  32. SEPTRA DS [Suspect]
     Active Substance: SULFAMETHOXAZOLE\TRIMETHOPRIM
     Indication: PRODUCT USED FOR UNKNOWN INDICATION
     Dosage: UNK
     Dates: start: 200810

REACTIONS (33)
  - Eosinophil count increased [Unknown]
  - Microangiopathy [Unknown]
  - Condition aggravated [Unknown]
  - Cardiac septal defect [Unknown]
  - Haematuria [Unknown]
  - Chronic sinusitis [Unknown]
  - Nodule [Unknown]
  - Lymphopenia [Unknown]
  - Haemorrhage [Unknown]
  - Eosinophilic granulomatosis with polyangiitis [Unknown]
  - Airway remodelling [Unknown]
  - Renal disorder [Unknown]
  - Lacrimation increased [Unknown]
  - Ventricular hypokinesia [Unknown]
  - Wall motion score index abnormal [Unknown]
  - Obesity [Unknown]
  - Productive cough [Unknown]
  - Viral infection [Unknown]
  - Respiratory symptom [Unknown]
  - Hypertension [Unknown]
  - Blood immunoglobulin E increased [Unknown]
  - Prostate cancer [Unknown]
  - Eosinophilic myocarditis [Unknown]
  - Pneumonia [Unknown]
  - Respiratory tract infection [Unknown]
  - Obstructive airways disorder [Unknown]
  - Confusional state [Unknown]
  - Memory impairment [Unknown]
  - Atopy [Unknown]
  - Asthma [Unknown]
  - Eosinophilic pneumonia [Unknown]
  - Central nervous system mass [Unknown]
  - Nasal polyps [Unknown]

NARRATIVE: CASE EVENT DATE: 200901
